FAERS Safety Report 17795671 (Version 1)
Quarter: 2020Q2

REPORT INFORMATION
  Report Type: Spontaneous
  Country: US (occurrence: US)
  Receive Date: 20200516
  Receipt Date: 20200516
  Transmission Date: 20200714
  Serious: No
  Sender: FDA-Public Use
  Company Number: US-DRREDDYS-USA/USA/20/0122824

PATIENT
  Age: 48 Year
  Sex: Male
  Weight: 67.5 kg

DRUGS (2)
  1. PANTOPRAZOLE SODIUM DR TABLETS 20MG AND  40MG [Concomitant]
     Active Substance: PANTOPRAZOLE SODIUM
     Indication: PRODUCT USED FOR UNKNOWN INDICATION
     Route: 065
  2. FEXOFENADINE HCL [Suspect]
     Active Substance: FEXOFENADINE HYDROCHLORIDE
     Indication: HYPERSENSITIVITY
     Route: 048
     Dates: start: 202004, end: 20200507

REACTIONS (3)
  - Product quality issue [Unknown]
  - Feeling abnormal [Unknown]
  - Drug ineffective [Unknown]
